FAERS Safety Report 14897588 (Version 1)
Quarter: 2018Q2

REPORT INFORMATION
  Report Type: Spontaneous
  Country: US (occurrence: US)
  Receive Date: 20180515
  Receipt Date: 20180515
  Transmission Date: 20180711
  Serious: No
  Sender: FDA-Public Use
  Company Number: US-TEVA-2018-US-893144

PATIENT
  Sex: Female

DRUGS (1)
  1. PROGESTERONE. [Suspect]
     Active Substance: PROGESTERONE
     Indication: OESTROGEN REPLACEMENT THERAPY
     Dates: start: 20180508, end: 20180508

REACTIONS (2)
  - Oropharyngeal pain [Recovered/Resolved]
  - Sensation of foreign body [Recovered/Resolved]

NARRATIVE: CASE EVENT DATE: 20180508
